FAERS Safety Report 22350915 (Version 1)
Quarter: 2023Q2

REPORT INFORMATION
  Report Type: Report from Study
  Country: US (occurrence: US)
  Receive Date: 20230522
  Receipt Date: 20230522
  Transmission Date: 20230722
  Serious: Yes (Hospitalization)
  Sender: FDA-Public Use
  Company Number: US-002147023-NVSC2023US111957

PATIENT
  Age: 66 Year
  Sex: Male

DRUGS (1)
  1. ENTRESTO [Suspect]
     Active Substance: SACUBITRIL\VALSARTAN
     Indication: Cardiac failure chronic
     Dosage: UNK UNK, BID
     Route: 048
     Dates: start: 2018

REACTIONS (5)
  - Pneumonia [Recovered/Resolved]
  - Dyspnoea [Recovered/Resolved]
  - Abdominal discomfort [Recovered/Resolved]
  - Food allergy [Recovered/Resolved]
  - Oral infection [Recovered/Resolved]

NARRATIVE: CASE EVENT DATE: 20230101
